FAERS Safety Report 18292184 (Version 1)
Quarter: 2020Q3

REPORT INFORMATION
  Report Type: Spontaneous
  Country: ES (occurrence: ES)
  Receive Date: 20200922
  Receipt Date: 20200922
  Transmission Date: 20201103
  Serious: Yes (Hospitalization)
  Sender: FDA-Public Use
  Company Number: ES-TEVA-2020-ES-1829547

PATIENT
  Age: 13 Year
  Sex: Female

DRUGS (8)
  1. VINCRISTINE [Suspect]
     Active Substance: VINCRISTINE
     Indication: EWING^S SARCOMA METASTATIC
     Route: 065
  2. HYDROXYCHLOROQUINE [Suspect]
     Active Substance: HYDROXYCHLOROQUINE
     Indication: COVID-19
     Dosage: 400 MILLIGRAM DAILY; ON FIRST DAY
     Route: 048
  3. DOXORUBICIN [Suspect]
     Active Substance: DOXORUBICIN
     Indication: EWING^S SARCOMA METASTATIC
     Route: 065
  4. MEROPENEM. [Suspect]
     Active Substance: MEROPENEM
     Indication: FEBRILE NEUTROPENIA
     Dosage: 60 MG/KG DAILY;
     Route: 065
  5. TEICOPLANIN [Suspect]
     Active Substance: TEICOPLANIN
     Indication: FEBRILE NEUTROPENIA
     Dosage: 10 MG/KG DAILY;
     Route: 065
  6. CYCLOPHOSPHAMIDE. [Suspect]
     Active Substance: CYCLOPHOSPHAMIDE
     Indication: EWING^S SARCOMA METASTATIC
     Route: 065
  7. LOPINAVIR/RITONAVIR [Suspect]
     Active Substance: LOPINAVIR\RITONAVIR
     Indication: COVID-19
     Route: 048
  8. HYDROXYCHLOROQUINE [Suspect]
     Active Substance: HYDROXYCHLOROQUINE
     Indication: COVID-19
     Dosage: 200 MILLIGRAM DAILY; ADMINISTERED FOR 4 DAYS
     Route: 048

REACTIONS (4)
  - Febrile neutropenia [Recovering/Resolving]
  - Off label use [Unknown]
  - Diarrhoea [Recovered/Resolved]
  - Drug ineffective [Unknown]
